FAERS Safety Report 9517342 (Version 2)
Quarter: 2014Q1

REPORT INFORMATION
  Report Type: Spontaneous
  Country: US (occurrence: None)
  Receive Date: 20130305
  Receipt Date: 20140306
  Transmission Date: 20141002
  Serious: Yes (Disabling, Other)
  Sender: FDA-Public Use
  Company Number: 163-21880-12122110

PATIENT
  Age: 8 Year
  Sex: Female

DRUGS (1)
  1. REVLIMID (LENALIDOMIDE) (CAPSULES) [Suspect]
     Indication: NEUROBLASTOMA
     Route: 048
     Dates: start: 20120712, end: 20121126

REACTIONS (3)
  - Adrenal gland cancer [None]
  - Disease progression [None]
  - Neuroblastoma [None]
